FAERS Safety Report 26109930 (Version 1)
Quarter: 2025Q4

REPORT INFORMATION
  Report Type: Report from Study
  Country: US (occurrence: US)
  Receive Date: 20251201
  Receipt Date: 20251201
  Transmission Date: 20260117
  Serious: Yes (Other)
  Sender: ABBVIE
  Company Number: US-ABBVIE-6560923

PATIENT
  Sex: Female

DRUGS (2)
  1. SKYRIZI [Suspect]
     Active Substance: RISANKIZUMAB-RZAA
     Indication: Crohn^s disease
     Route: 058
     Dates: start: 2023
  2. SKYRIZI [Suspect]
     Active Substance: RISANKIZUMAB-RZAA
     Route: 058
     Dates: start: 20240903

REACTIONS (5)
  - Gastric neoplasm [Unknown]
  - Gastroenteritis [Unknown]
  - Pelvic floor hernia [Not Recovered/Not Resolved]
  - Oesophageal dilation procedure [Unknown]
  - Eosinophilic oesophagitis [Unknown]
